FAERS Safety Report 9306876 (Version 1)
Quarter: 2013Q2

REPORT INFORMATION
  Report Type: Spontaneous
  Country: PA (occurrence: PA)
  Receive Date: 20130523
  Receipt Date: 20130523
  Transmission Date: 20140414
  Serious: Yes (Hospitalization)
  Sender: FDA-Public Use
  Company Number: PA-ABBOTT-13P-125-1094006-00

PATIENT
  Age: 27 Year
  Sex: 0

DRUGS (4)
  1. HUMIRA [Suspect]
     Indication: CROHN^S DISEASE
     Route: 058
     Dates: start: 20130426
  2. HUMIRA [Suspect]
     Route: 058
     Dates: start: 20130427
  3. HUMIRA [Suspect]
     Route: 058
     Dates: start: 20130510
  4. PREDNISONE [Concomitant]
     Indication: CROHN^S DISEASE
     Route: 048

REACTIONS (4)
  - Asthenia [Recovering/Resolving]
  - Disorientation [Recovering/Resolving]
  - Syncope [Recovering/Resolving]
  - Haemoglobin decreased [Recovering/Resolving]
